FAERS Safety Report 7916795-6 (Version None)
Quarter: 2011Q4

REPORT INFORMATION
  Report Type: 
  Country: None (occurrence: None)
  Receive Date: 20111114
  Receipt Date: 20111027
  Transmission Date: 20120403
  Serious: Yes (Hospitalization, Other)
  Sender: FDA-Public Use
  Company Number: NSR_00305_2011

PATIENT
  Age: 20 Year
  Sex: Female

DRUGS (3)
  1. LAMOTRIGINE [Suspect]
     Indication: CONVULSION
     Dosage: 200 MG QD
  2. VALPROIC ACID [Concomitant]
  3. CARBAMAZEPINE [Concomitant]

REACTIONS (6)
  - PYREXIA [None]
  - MOUTH ULCERATION [None]
  - CONJUNCTIVAL OEDEMA [None]
  - TOXIC EPIDERMAL NECROLYSIS [None]
  - ABDOMINAL PAIN [None]
  - PAIN OF SKIN [None]
